FAERS Safety Report 18372473 (Version 6)
Quarter: 2022Q2

REPORT INFORMATION
  Report Type: Spontaneous
  Country: US (occurrence: US)
  Receive Date: 20201012
  Receipt Date: 20220401
  Transmission Date: 20220721
  Serious: No
  Sender: FDA-Public Use
  Company Number: US-PFIZER INC-2020389603

PATIENT
  Age: 62 Year
  Sex: Female

DRUGS (3)
  1. IBRANCE [Suspect]
     Active Substance: PALBOCICLIB
     Indication: Malignant nipple neoplasm female
     Dosage: 75 MG, CYCLIC (DAILY 21 DAYS ON , 7 DAYS,OFF ON A 28 DAY CYCLE)
     Dates: end: 20201204
  2. IBRANCE [Suspect]
     Active Substance: PALBOCICLIB
     Dosage: 75 MG, CYCLIC (DAILY 21 DAYS ON , 7 DAYS,OFF ON A 28 DAY CYCLE)
     Dates: start: 20201213
  3. IBRANCE [Suspect]
     Active Substance: PALBOCICLIB
     Dosage: 75 MG

REACTIONS (7)
  - Fatigue [Unknown]
  - Nausea [Recovering/Resolving]
  - Sinusitis [Unknown]
  - White blood cell count decreased [Recovering/Resolving]
  - Flatulence [Unknown]
  - Arthralgia [Unknown]
  - Full blood count abnormal [Unknown]

NARRATIVE: CASE EVENT DATE: 20200101
